FAERS Safety Report 10916503 (Version 6)
Quarter: 2022Q4

REPORT INFORMATION
  Report Type: Spontaneous
  Country: None (occurrence: FR)
  Receive Date: 20150311
  Receipt Date: 20221123
  Transmission Date: 20230113
  Serious: Yes (Hospitalization, Disabling)
  Sender: FDA-Public Use
  Company Number: 2015-0731-SPO

PATIENT
  Age: 53 Year
  Sex: Female
  Weight: 75 kg

DRUGS (9)
  1. ESTROGEL [Suspect]
     Active Substance: ESTRADIOL
     Indication: Polycystic ovaries
     Route: 065
     Dates: start: 1982, end: 2003
  2. ESTROGEL [Suspect]
     Active Substance: ESTRADIOL
     Indication: Hirsutism
  3. CYPROTERONE ACETATE [Suspect]
     Active Substance: CYPROTERONE ACETATE
     Route: 048
     Dates: start: 1982, end: 2004
  4. ESTRADIOL [Suspect]
     Active Substance: ESTRADIOL
     Route: 065
     Dates: start: 1982, end: 2003
  5. CYPROTERONE ACETATE [Suspect]
     Active Substance: CYPROTERONE ACETATE
     Route: 048
     Dates: start: 2004, end: 20101208
  6. ESTRADIOL [Suspect]
     Active Substance: ESTRADIOL
     Route: 065
     Dates: start: 2003, end: 2003
  7. ESTRADIOL [Suspect]
     Active Substance: ESTRADIOL
     Route: 065
     Dates: start: 2004, end: 2009
  8. TENORMIN [Concomitant]
     Active Substance: ATENOLOL
     Route: 065
  9. ESOMEPRAZOLE(ESOMEPRAZOLE) [Concomitant]
     Route: 065

REACTIONS (22)
  - Meningioma [Recovered/Resolved with Sequelae]
  - Diarrhoea [Recovered/Resolved]
  - Loss of libido [Recovered/Resolved]
  - Vomiting [Recovered/Resolved]
  - Exophthalmos [Recovered/Resolved with Sequelae]
  - Craniocerebral injury [Recovered/Resolved with Sequelae]
  - Swelling face [Recovered/Resolved with Sequelae]
  - Anosmia [Not Recovered/Not Resolved]
  - Fatigue [Recovered/Resolved]
  - Hypoaesthesia [Unknown]
  - Initial insomnia [Recovered/Resolved]
  - Ageusia [Unknown]
  - Sleep apnoea syndrome [Recovered/Resolved]
  - Headache [Unknown]
  - Asthenia [Unknown]
  - Weight increased [Recovered/Resolved]
  - Product use in unapproved indication [None]
  - Cholelithiasis [Recovered/Resolved]
  - Orthostatic hypotension [Not Recovered/Not Resolved]
  - Depression [Not Recovered/Not Resolved]
  - Head deformity [Not Recovered/Not Resolved]
  - Tachycardia [Unknown]

NARRATIVE: CASE EVENT DATE: 19820101
